FAERS Safety Report 6465020-4 (Version None)
Quarter: 2009Q4

REPORT INFORMATION
  Report Type: 
  Country: None (occurrence: None)
  Receive Date: 20091123
  Receipt Date: 20091112
  Transmission Date: 20100525
  Serious: Yes (Other)
  Sender: FDA-Public Use
  Company Number: 2009-04787

PATIENT
  Age: 40 Year
  Sex: Female

DRUGS (1)
  1. VELCADE [Suspect]
     Indication: MULTIPLE MYELOMA
     Dosage: 2 MG, INTRAVENOUS
     Route: 042

REACTIONS (3)
  - HYPERVISCOSITY SYNDROME [None]
  - INCORRECT DRUG ADMINISTRATION DURATION [None]
  - NEUROPATHY PERIPHERAL [None]
